FAERS Safety Report 8283579 (Version 11)
Quarter: 2013Q1

REPORT INFORMATION
  Report Type: Spontaneous
  Country: US (occurrence: US)
  Receive Date: 20111122
  Receipt Date: 20130222
  Transmission Date: 20140127
  Serious: Yes (Other)
  Sender: FDA-Public Use
  Company Number: PHHY2011US68681

PATIENT
  Age: 51 Year
  Sex: Female
  Weight: 68.27 kg

DRUGS (17)
  1. GILENYA [Suspect]
     Indication: RELAPSING-REMITTING MULTIPLE SCLEROSIS
     Dosage: 0.5 MG, QD
     Route: 048
     Dates: start: 20110725, end: 20110927
  2. GILENYA [Suspect]
     Dosage: 0.5 MG, DAILY
     Route: 048
     Dates: start: 201112, end: 20120131
  3. GILENYA [Suspect]
     Dosage: 0.5 MG, QD
     Dates: start: 20120814
  4. NORCO 10 [Suspect]
     Dosage: 325 MG, OT
  5. BACLOFEN [Concomitant]
     Dosage: UNK UKN, OT
  6. ZOLOFT [Concomitant]
     Dosage: 25 MG, OT
  7. ALPRAZOLAM [Concomitant]
     Dosage: 1 MG, OT
  8. CYMBALTA [Concomitant]
     Dosage: 30 MG, UNK
  9. AMBIEN [Concomitant]
     Dosage: 10 MG, UNK
  10. BENADRYL [Concomitant]
     Dosage: 25 MG, UNK
  11. WELLBUTRIN [Concomitant]
     Dosage: 100 MG, UNK
  12. HYDROCODONE W/APAP [Concomitant]
     Dosage: 5-325 MG
  13. COLACE [Concomitant]
     Dosage: 100 MG, UNK
  14. IMODIUM [Concomitant]
     Dosage: 2 MG, UNK
  15. ASA [Concomitant]
     Dosage: 81 MG, UNK
  16. VAGIFEM [Concomitant]
     Dosage: 10 UG, UNK
     Route: 048
  17. BENADRYL /00647601/ [Concomitant]
     Dosage: 25 MG, UNK
     Route: 048

REACTIONS (22)
  - Oedema peripheral [Not Recovered/Not Resolved]
  - Drug hypersensitivity [Unknown]
  - Blister [Recovering/Resolving]
  - Pruritus [Not Recovered/Not Resolved]
  - Urticaria [Unknown]
  - Rash [Not Recovered/Not Resolved]
  - Erythema [Unknown]
  - Burning sensation [Unknown]
  - Skin discolouration [Unknown]
  - Insomnia [Not Recovered/Not Resolved]
  - Musculoskeletal stiffness [Unknown]
  - Chromaturia [Unknown]
  - Diplopia [Not Recovered/Not Resolved]
  - Pain in extremity [Unknown]
  - Fatigue [Unknown]
  - Malaise [Unknown]
  - Pain [Unknown]
  - Arthralgia [Unknown]
  - Pyrexia [Not Recovered/Not Resolved]
  - Diarrhoea [Not Recovered/Not Resolved]
  - Vision blurred [Not Recovered/Not Resolved]
  - Asthenia [Unknown]
